APPROVED DRUG PRODUCT: URSODIOL
Active Ingredient: URSODIOL
Strength: 300MG
Dosage Form/Route: CAPSULE;ORAL
Application: A090530 | Product #001
Applicant: QUAGEN PHARMACEUTICALS LLC
Approved: Feb 17, 2010 | RLD: No | RS: No | Type: DISCN